FAERS Safety Report 8002366-2 (Version None)
Quarter: 2011Q4

REPORT INFORMATION
  Report Type: 
  Country: None (occurrence: None)
  Receive Date: 20111222
  Receipt Date: 20110621
  Transmission Date: 20120403
  Serious: No
  Sender: FDA-Public Use
  Company Number: US-GLAXOSMITHKLINE-A0932190A

PATIENT
  Age: 33 Year
  Sex: Male

DRUGS (1)
  1. NICOTINE POLACRILEX [Suspect]
     Indication: EX-TOBACCO USER

REACTIONS (5)
  - INTENTIONAL DRUG MISUSE [None]
  - PALPITATIONS [None]
  - NICOTINE DEPENDENCE [None]
  - DYSPNOEA [None]
  - CHEST DISCOMFORT [None]
